FAERS Safety Report 25324277 (Version 2)
Quarter: 2025Q2

REPORT INFORMATION
  Report Type: Spontaneous
  Country: US (occurrence: US)
  Receive Date: 20250516
  Receipt Date: 20250522
  Transmission Date: 20250717
  Serious: No
  Sender: BAYER HEALTHCARE PHARMACEUTICALS INC.
  Company Number: US-BAYER-2025A066004

PATIENT
  Age: 56 Year
  Sex: Female

DRUGS (1)
  1. ESTRADIOL [Suspect]
     Active Substance: ESTRADIOL
     Route: 062

REACTIONS (2)
  - Device adhesion issue [None]
  - Product dose omission issue [None]

NARRATIVE: CASE EVENT DATE: 20250503
